FAERS Safety Report 8225615-4 (Version None)
Quarter: 2012Q1

REPORT INFORMATION
  Report Type: 
  Country: None (occurrence: None)
  Receive Date: 20120321
  Receipt Date: 20120312
  Transmission Date: 20120608
  Serious: Yes (Life-Threatening)
  Sender: FDA-Public Use
  Company Number: CN-BRISTOL-MYERS SQUIBB COMPANY-16408643

PATIENT
  Age: 63 Year
  Sex: Male
  Weight: 65 kg

DRUGS (3)
  1. VINORELBINE [Suspect]
     Indication: NON-SMALL CELL LUNG CANCER
     Dosage: LAST 19NOV10.AND CONTINUED.INFUSION. 40MG FROM 3SEP10-30SEP10(77D) 20MG FROM 21OCT10-19NOV10(77D)
     Route: 042
     Dates: start: 20100903, end: 20101119
  2. CISPLATIN [Suspect]
     Indication: NON-SMALL CELL LUNG CANCER
     Dosage: LAST 12NOV10.AND CONTINUED 120MG FROM 3SEP10 - 24SEP10(21D) 40MG FROM 21OCT10 - 12NOV10(70D)
     Route: 041
     Dates: start: 20100903, end: 20101112
  3. CETUXIMAB [Suspect]
     Indication: NON-SMALL CELL LUNG CANCER
     Dosage: LAST DOSE:3DEC10.AND CONTINUED INITIAL DOSE:640MG  ON 27AUG10 03SEP-03DEC10
     Route: 041
     Dates: start: 20100827, end: 20101203

REACTIONS (3)
  - BONE MARROW FAILURE [None]
  - LEUKOPENIA [None]
  - NEUTROPENIA [None]
